FAERS Safety Report 5067895-2 (Version None)
Quarter: 2006Q3

REPORT INFORMATION
  Report Type: 
  Country: None (occurrence: None)
  Receive Date: 20060731
  Receipt Date: 20060719
  Transmission Date: 20061208
  Serious: Yes (Hospitalization, Other)
  Sender: FDA-Public Use
  Company Number: 012385

PATIENT
  Age: 50 Year
  Sex: Female

DRUGS (2)
  1. PRIALT [Suspect]
     Indication: NEURALGIA
     Dosage: SEE IMAGE
     Route: 037
     Dates: start: 20060101, end: 20060101
  2. PRIALT [Suspect]
     Indication: NEURALGIA
     Dosage: SEE IMAGE
     Route: 037
     Dates: start: 20060101, end: 20060101

REACTIONS (2)
  - SELF INJURIOUS BEHAVIOUR [None]
  - SENSORY DISTURBANCE [None]
